FAERS Safety Report 6931754-8 (Version None)
Quarter: 2010Q3

REPORT INFORMATION
  Report Type: 
  Country: None (occurrence: None)
  Receive Date: 20100819
  Receipt Date: 20100813
  Transmission Date: 20110219
  Serious: Yes (Death)
  Sender: FDA-Public Use
  Company Number: US-CELGENEUS-163-21880-10060079

PATIENT
  Sex: Male

DRUGS (11)
  1. REVLIMID [Suspect]
     Indication: MULTIPLE MYELOMA
     Route: 048
     Dates: start: 20100128
  2. REVLIMID [Suspect]
     Route: 048
     Dates: start: 20100501, end: 20100531
  3. LORTAB [Concomitant]
     Indication: PAIN
     Route: 065
     Dates: start: 20080526, end: 20100531
  4. MORPHINE SULFATE [Concomitant]
     Indication: PAIN
     Route: 048
     Dates: start: 20080518, end: 20100531
  5. NEURONTIN [Concomitant]
     Dates: start: 20090514, end: 20100531
  6. DIFLUCAN [Concomitant]
     Route: 048
     Dates: start: 20090514, end: 20090614
  7. DECADRON [Concomitant]
     Indication: MULTIPLE MYELOMA
     Route: 048
     Dates: start: 20090104, end: 20100531
  8. VELCADE [Concomitant]
     Indication: MULTIPLE MYELOMA
     Route: 065
     Dates: start: 20091203, end: 20100215
  9. ZOMETA [Concomitant]
     Indication: MULTIPLE MYELOMA
     Route: 065
     Dates: start: 20080407, end: 20100401
  10. ZOMETA [Concomitant]
     Route: 065
     Dates: start: 20100401
  11. EPOGEN [Concomitant]
     Dosage: 80K
     Route: 058
     Dates: start: 20100401

REACTIONS (2)
  - MULTIPLE MYELOMA [None]
  - RENAL FAILURE [None]
